FAERS Safety Report 9871454 (Version 1)
Quarter: 2014Q1

REPORT INFORMATION
  Report Type: Spontaneous
  Country: US (occurrence: None)
  Receive Date: 20140204
  Receipt Date: 20140204
  Transmission Date: 20141002
  Serious: No
  Sender: FDA-Public Use
  Company Number: None

PATIENT
  Sex: 0

DRUGS (1)
  1. FLUTICASONE PROPIONATE [Suspect]

REACTIONS (6)
  - Dyspnoea [None]
  - Diarrhoea [None]
  - Hypoaesthesia [None]
  - Neck pain [None]
  - Pain in extremity [None]
  - Musculoskeletal pain [None]
